FAERS Safety Report 10699987 (Version 1)
Quarter: 2014Q4

REPORT INFORMATION
  Report Type: Spontaneous
  Country: US (occurrence: US)
  Receive Date: 20141028
  Receipt Date: 20141028
  Transmission Date: 20150529
  Serious: Yes (Other)
  Sender: FDA-Public Use
  Company Number: US-APOTEX-2014AP005365

PATIENT
  Age: 66 Year
  Sex: Male

DRUGS (23)
  1. ZOLPIDEM [Concomitant]
     Active Substance: ZOLPIDEM\ZOLPIDEM TARTRATE
     Indication: PAIN
     Dosage: UNK
     Route: 048
  2. PARACETAMOL, CAFFEINE [Concomitant]
     Indication: PAIN
     Dosage: UNK
     Route: 048
  3. ELETRIPTAN [Concomitant]
     Active Substance: ELETRIPTAN
     Indication: PAIN
     Dosage: UNK
     Route: 048
  4. ZICONOTIDE [Suspect]
     Active Substance: ZICONOTIDE
     Dosage: 2.2 ?G, PER DAY
     Route: 037
  5. ZICONOTIDE [Suspect]
     Active Substance: ZICONOTIDE
     Dosage: 0.25 ?G, PER DAY BOLUS
     Route: 065
  6. ALPRAZOLAM. [Concomitant]
     Active Substance: ALPRAZOLAM
     Indication: PAIN
     Dosage: UNK
     Route: 048
  7. FROVATRIPTAN [Concomitant]
     Active Substance: FROVATRIPTAN
     Indication: PAIN
     Dosage: UNK
     Route: 048
  8. PROMETHAZINE [Concomitant]
     Active Substance: PROMETHAZINE\PROMETHAZINE HYDROCHLORIDE
     Indication: PAIN
     Dosage: UNK
     Route: 048
  9. CLONIDINE. [Concomitant]
     Active Substance: CLONIDINE
     Indication: PAIN
     Dosage: 133 ?G, PER DAY
     Route: 037
  10. BACLOFEN. [Concomitant]
     Active Substance: BACLOFEN
     Dosage: 400 ?G, PER DAY
     Route: 037
  11. OXYCODONE HCL [Suspect]
     Active Substance: OXYCODONE HYDROCHLORIDE
     Indication: PAIN
     Dosage: UNK
     Route: 048
  12. BUPIVACAINE [Concomitant]
     Active Substance: BUPIVACAINE
     Indication: PAIN
     Dosage: 5.3 MG, PER DAY
     Route: 037
  13. HYDROMORPHONE [Suspect]
     Active Substance: HYDROMORPHONE
     Indication: PAIN
     Dosage: 17 MG, PER DAY
     Route: 048
  14. ZICONOTIDE [Suspect]
     Active Substance: ZICONOTIDE
     Indication: PAIN
     Dosage: 1.2 ?G, PER DAY
     Route: 037
  15. CELECOXIB. [Concomitant]
     Active Substance: CELECOXIB
     Indication: PAIN
     Dosage: UNK
     Route: 048
  16. NAPROXEN. [Concomitant]
     Active Substance: NAPROXEN
     Indication: PAIN
     Dosage: UNK
     Route: 065
  17. BACLOFEN. [Concomitant]
     Active Substance: BACLOFEN
     Indication: PAIN
     Dosage: 400 ?G, PER DAY
     Route: 048
  18. ESZOPICLONE. [Concomitant]
     Active Substance: ESZOPICLONE
     Indication: INSOMNIA
     Dosage: UNK
     Route: 048
  19. FENTANYL. [Suspect]
     Active Substance: FENTANYL
     Indication: PAIN
     Dosage: UNK
     Route: 062
  20. HYDROMORPHONE [Suspect]
     Active Substance: HYDROMORPHONE
     Dosage: 17 MG/PER DAY
     Route: 037
  21. SUFENTANIL [Suspect]
     Active Substance: SUFENTANIL
     Indication: PAIN
     Dosage: 7 ?G, PER DAY
     Route: 037
  22. DIAZEPAM. [Concomitant]
     Active Substance: DIAZEPAM
     Indication: PAIN
     Dosage: UNK
     Route: 048
  23. CLONAZEPAM. [Concomitant]
     Active Substance: CLONAZEPAM
     Indication: PAIN
     Dosage: UNK
     Route: 048

REACTIONS (13)
  - Hyperaesthesia [Recovering/Resolving]
  - Urinary retention [Recovered/Resolved]
  - Headache [Unknown]
  - Mental status changes [Recovered/Resolved]
  - Impaired gastric emptying [Unknown]
  - Syncope [Recovered/Resolved]
  - Dry mouth [Unknown]
  - Hypotension [Unknown]
  - Nausea [Recovered/Resolved]
  - Vomiting [Recovered/Resolved]
  - Constipation [Unknown]
  - Insomnia [Unknown]
  - Confusional state [Recovered/Resolved]
